FAERS Safety Report 16462479 (Version 1)
Quarter: 2019Q2

REPORT INFORMATION
  Report Type: Report from Study
  Country: None (occurrence: EE)
  Receive Date: 20190621
  Receipt Date: 20190621
  Transmission Date: 20190711
  Serious: Yes (Hospitalization)
  Sender: FDA-Public Use
  Company Number: EE-ABBVIE-19S-221-2829150-00

PATIENT
  Age: 71 Year
  Sex: Female

DRUGS (4)
  1. KETIPINOR [Concomitant]
     Active Substance: QUETIAPINE FUMARATE
     Indication: INSOMNIA
     Route: 048
     Dates: start: 20190604
  2. MADOPAR [Concomitant]
     Active Substance: BENSERAZIDE HYDROCHLORIDE\LEVODOPA
     Indication: PARKINSON^S DISEASE
     Dosage: 200 MG+50MG
     Route: 048
     Dates: start: 20190604
  3. MADOPAR [Concomitant]
     Active Substance: BENSERAZIDE HYDROCHLORIDE\LEVODOPA
     Dosage: 100 MG+25 MGMG
     Route: 048
     Dates: start: 20190604
  4. DUODOPA [Suspect]
     Active Substance: CARBIDOPA\LEVODOPA
     Indication: PARKINSON^S DISEASE
     Dosage: MORNING DOSE 10.0 ML, CONTINUED DOSE 2.4 ML/H, EXTRA DOSE 2.0 ML/H.
     Route: 050
     Dates: start: 20180529, end: 20190606

REACTIONS (1)
  - Urinary tract infection [Not Recovered/Not Resolved]

NARRATIVE: CASE EVENT DATE: 20190604
